FAERS Safety Report 7151299-2 (Version None)
Quarter: 2010Q4

REPORT INFORMATION
  Report Type: 
  Country: None (occurrence: None)
  Receive Date: 20101207
  Receipt Date: 20101207
  Transmission Date: 20110411
  Serious: Yes (Hospitalization)
  Sender: FDA-Public Use
  Company Number: None

PATIENT
  Age: 36 Year
  Sex: Female
  Weight: 58.9676 kg

DRUGS (1)
  1. BENZTROPINE MESYLATE [Suspect]
     Indication: TREMOR
     Dosage: 1 TABLET 2 TIMES DAILY
     Dates: start: 20100412, end: 20100502

REACTIONS (4)
  - CONFUSIONAL STATE [None]
  - DEPRESSION [None]
  - DISORIENTATION [None]
  - HALLUCINATION, VISUAL [None]
